APPROVED DRUG PRODUCT: BUSULFAN
Active Ingredient: BUSULFAN
Strength: 6MG/ML
Dosage Form/Route: INJECTABLE;INJECTION
Application: A205184 | Product #001
Applicant: PHARMOBEDIENT CONSULTING LLC
Approved: Jul 13, 2018 | RLD: No | RS: No | Type: DISCN